FAERS Safety Report 6310299-2 (Version None)
Quarter: 2009Q3

REPORT INFORMATION
  Report Type: 
  Country: None (occurrence: None)
  Receive Date: 20090814
  Receipt Date: 20090806
  Transmission Date: 20100115
  Serious: Yes (Hospitalization, Other)
  Sender: FDA-Public Use
  Company Number: PHHY2009JP33180

PATIENT
  Sex: Female

DRUGS (24)
  1. COMTAN CMT+TAB [Suspect]
     Indication: DRUG EFFECT DECREASED
     Dosage: 300 MG DAILY
     Route: 048
     Dates: start: 20080616, end: 20080911
  2. COMTAN CMT+TAB [Suspect]
     Dosage: 400 MG DAILY
     Route: 048
     Dates: start: 20080912
  3. CARBIDOPA AND LEVODOPA [Suspect]
     Indication: PARKINSON'S DISEASE
     Dosage: 300 MG DAILY
     Route: 048
     Dates: start: 20080702, end: 20080911
  4. CARBIDOPA AND LEVODOPA [Suspect]
     Dosage: 400 MG DAILY
     Route: 048
     Dates: start: 20080912
  5. REQUIP [Suspect]
     Indication: PARKINSON'S DISEASE
     Dosage: 0.75 MG DAILY
     Route: 048
     Dates: start: 20080702, end: 20080704
  6. REQUIP [Suspect]
     Dosage: 2 MG DAILY
     Route: 048
     Dates: start: 20080705, end: 20080707
  7. REQUIP [Suspect]
     Dosage: 3 MG DAILY
     Route: 048
     Dates: start: 20080708, end: 20080710
  8. REQUIP [Suspect]
     Dosage: 6 MG DAILY
     Route: 048
     Dates: start: 20080711, end: 20080801
  9. REQUIP [Suspect]
     Dosage: 3 MG DAILY
     Route: 048
     Dates: start: 20080802, end: 20080817
  10. REQUIP [Suspect]
     Dosage: 5 MG DAILY
     Route: 048
     Dates: start: 20080818
  11. ARTANE [Concomitant]
     Indication: PARKINSON'S DISEASE
     Dosage: 3 MG DAILY
     Route: 048
     Dates: start: 20070402, end: 20080708
  12. SYMMETREL [Concomitant]
     Indication: PARKINSON'S DISEASE
     Dosage: 150 MG DAILY
     Route: 048
     Dates: start: 20080510, end: 20080519
  13. BENET [Concomitant]
     Indication: OSTEOPOROSIS
     Dosage: 2.5 MG DAILY
     Route: 048
     Dates: start: 20070402
  14. ALOSENN [Concomitant]
     Indication: CONSTIPATION
     Dosage: 500 MG DAILY
     Route: 048
     Dates: start: 20070402, end: 20081009
  15. CIBACEN [Concomitant]
     Indication: HYPERTENSION
     Dosage: 5 MG DAILY
     Route: 048
     Dates: start: 20070402
  16. RINLAXER [Concomitant]
     Indication: PARKINSON'S DISEASE
     Dosage: 750 MG DAILY
     Route: 048
     Dates: start: 20070402
  17. ALUSA [Concomitant]
     Indication: ANXIETY DISORDER
     Dosage: 300 MG DAILY
     Route: 048
     Dates: start: 20070402
  18. LORCAM [Concomitant]
     Indication: OSTEOPOROSIS
     Dosage: 12 MG DAILY
     Route: 048
     Dates: start: 20070402
  19. RIVOTRIL [Concomitant]
     Indication: ANXIETY DISORDER
     Dosage: 1 MG DAILY
     Route: 048
     Dates: start: 20080825
  20. RIVOTRIL [Concomitant]
     Dosage: 0.5 MG
     Route: 048
  21. RISPERDAL [Concomitant]
     Indication: ANXIETY DISORDER
     Dosage: 1 MG DAILY
     Route: 048
     Dates: start: 20080811, end: 20090110
  22. ALMARL [Concomitant]
     Indication: HYPERTENSION
     Dosage: 5 MG DAILY
     Route: 048
     Dates: start: 20090411
  23. FERROMIA [Concomitant]
     Indication: ANAEMIA
     Dosage: 50 MG DAILY
     Route: 048
     Dates: start: 20090509
  24. SENNOSIDE [Concomitant]
     Indication: CONSTIPATION
     Dosage: 24 MG DAILY
     Route: 048
     Dates: start: 20081010

REACTIONS (7)
  - CONDITION AGGRAVATED [None]
  - DELUSION [None]
  - DRUG INEFFECTIVE [None]
  - DYSKINESIA [None]
  - HALLUCINATION [None]
  - MOVEMENT DISORDER [None]
  - PSYCHIATRIC SYMPTOM [None]
